FAERS Safety Report 23324363 (Version 1)
Quarter: 2023Q4

REPORT INFORMATION
  Report Type: Other
  Country: US (occurrence: None)
  Receive Date: 20231221
  Receipt Date: 20231221
  Transmission Date: 20240110
  Serious: No
  Sender: FDA-Public Use
  Company Number: US-ROCHE-3474041

PATIENT
  Age: 42 Year
  Sex: Male
  Weight: 111.23 kg

DRUGS (5)
  1. OCREVUS [Suspect]
     Active Substance: OCRELIZUMAB
     Indication: Relapsing-remitting multiple sclerosis
     Dosage: YES
     Route: 042
     Dates: start: 201909
  2. IBUPROFEN [Concomitant]
     Active Substance: IBUPROFEN
  3. BIOTIN [Concomitant]
     Active Substance: BIOTIN
  4. SODIUM ASCORBATE [Concomitant]
     Active Substance: SODIUM ASCORBATE
  5. PROAIR HFA [Concomitant]
     Active Substance: ALBUTEROL SULFATE

REACTIONS (6)
  - Pyrexia [Recovered/Resolved]
  - Influenza [Recovered/Resolved]
  - Blood pressure increased [Recovered/Resolved]
  - Influenza B virus test positive [Unknown]
  - JC polyomavirus test positive [Unknown]
  - Hepatic enzyme increased [Unknown]

NARRATIVE: CASE EVENT DATE: 20231101
